FAERS Safety Report 5423798-2 (Version None)
Quarter: 2007Q3

REPORT INFORMATION
  Report Type: 
  Country: None (occurrence: None)
  Receive Date: 20070727
  Receipt Date: 20060524
  Transmission Date: 20080115
  Serious: Yes (Death, Hospitalization)
  Sender: FDA-Public Use
  Company Number: THYM-10944

PATIENT
  Age: 80 Year
  Sex: Female
  Weight: 62.1 kg

DRUGS (17)
  1. THYMOGLOBULIN [Suspect]
     Indication: APLASTIC ANAEMIA
     Dosage: 200 MG QD IV
     Route: 042
     Dates: start: 20051109, end: 20051113
  2. ZESTRIL [Concomitant]
  3. LOPRESSOR [Concomitant]
  4. MIRTAZAPINE [Concomitant]
  5. NORVASC [Concomitant]
  6. PREDNISONE [Concomitant]
  7. GLIPIZIDE SR [Concomitant]
  8. SENOKOT [Concomitant]
  9. PERCOCET [Concomitant]
  10. NEXIUM [Concomitant]
  11. COLACE [Concomitant]
  12. VITAMIN CAP [Concomitant]
  13. BOOST HIGH PROTEIN DRINK [Concomitant]
  14. MAGNESIUM OXIDE [Concomitant]
  15. CYCLOSPORINE [Concomitant]
  16. CYCLOSPORINE [Concomitant]
  17. SYNTHROID [Concomitant]

REACTIONS (3)
  - ACUTE PULMONARY OEDEMA [None]
  - CARDIAC DISORDER [None]
  - CHEST PAIN [None]
